FAERS Safety Report 11619765 (Version 1)
Quarter: 2015Q4

REPORT INFORMATION
  Report Type: Spontaneous
  Country: RU (occurrence: RU)
  Receive Date: 20151012
  Receipt Date: 20151012
  Transmission Date: 20160304
  Serious: Yes (Other)
  Sender: FDA-Public Use
  Company Number: RU-JNJFOC-20151005643

PATIENT
  Age: 31 Year
  Sex: Female

DRUGS (1)
  1. INTELENCE [Suspect]
     Active Substance: ETRAVIRINE
     Indication: PRODUCT USED FOR UNKNOWN INDICATION
     Route: 048

REACTIONS (5)
  - General physical health deterioration [Unknown]
  - Chills [Unknown]
  - Osteochondrosis [Unknown]
  - Pyrexia [Unknown]
  - Hypoaesthesia [Unknown]
